FAERS Safety Report 13242683 (Version 1)
Quarter: 2017Q1

REPORT INFORMATION
  Report Type: Report from Study
  Country: DE (occurrence: DE)
  Receive Date: 20170217
  Receipt Date: 20170217
  Transmission Date: 20170428
  Serious: Yes (Hospitalization, Other)
  Sender: FDA-Public Use
  Company Number: DE-SA-2015SA052386

PATIENT
  Age: 40 Year
  Sex: Female

DRUGS (2)
  1. LEMTRADA [Suspect]
     Active Substance: ALEMTUZUMAB
     Indication: MULTIPLE SCLEROSIS
     Route: 041
     Dates: start: 20160405, end: 20160407
  2. LEMTRADA [Suspect]
     Active Substance: ALEMTUZUMAB
     Indication: MULTIPLE SCLEROSIS
     Route: 041
     Dates: start: 20150413, end: 20150417

REACTIONS (15)
  - Gait disturbance [Recovered/Resolved]
  - Hyperhidrosis [Recovered/Resolved]
  - Abnormal dreams [Recovered/Resolved]
  - Hyperthyroidism [Not Recovered/Not Resolved]
  - Pyrexia [Recovered/Resolved]
  - Vomiting [Recovered/Resolved]
  - Fatigue [Not Recovered/Not Resolved]
  - Visual impairment [Recovered/Resolved]
  - Hypothyroidism [Unknown]
  - Multiple sclerosis relapse [Recovered/Resolved]
  - Poor quality sleep [Recovered/Resolved]
  - Chills [Recovered/Resolved]
  - Dysgeusia [Recovered/Resolved]
  - Neuralgia [Recovered/Resolved]
  - Menorrhagia [Recovering/Resolving]

NARRATIVE: CASE EVENT DATE: 2015
